FAERS Safety Report 12573425 (Version 2)
Quarter: 2016Q3

REPORT INFORMATION
  Report Type: Spontaneous
  Country: US (occurrence: US)
  Receive Date: 20160720
  Receipt Date: 20160913
  Transmission Date: 20161109
  Serious: Yes (Death, Hospitalization, Other)
  Sender: FDA-Public Use
  Company Number: US-BRISTOL-MYERS SQUIBB COMPANY-BMS-2016-058209

PATIENT
  Sex: Male

DRUGS (3)
  1. ELIQUIS [Suspect]
     Active Substance: APIXABAN
     Indication: PULMONARY EMBOLISM
  2. ASPIRIN. [Suspect]
     Active Substance: ASPIRIN
     Indication: PRODUCT USED FOR UNKNOWN INDICATION
     Route: 065
  3. ELIQUIS [Suspect]
     Active Substance: APIXABAN
     Indication: DEEP VEIN THROMBOSIS
     Dosage: 5 MG, BID
     Route: 048
     Dates: start: 201603

REACTIONS (2)
  - Cerebrovascular accident [Unknown]
  - Death [Fatal]
